FAERS Safety Report 12683103 (Version 1)
Quarter: 2016Q3

REPORT INFORMATION
  Report Type: Spontaneous
  Country: NL (occurrence: NL)
  Receive Date: 20160825
  Receipt Date: 20160825
  Transmission Date: 20161109
  Serious: Yes (Death)
  Sender: FDA-Public Use
  Company Number: NL-TEVA-686924ISR

PATIENT
  Age: 52 Year
  Sex: Female

DRUGS (6)
  1. 1:200,000 EPINEPHRINE [Concomitant]
     Dosage: 1:200,000 EPINEPHRINE
  2. SODIUM CHLORIDE 0.9% [Concomitant]
     Active Substance: SODIUM CHLORIDE
     Dosage: 1L OF 0.9 % SALINE
  3. PROPRANOLOL HYDROCHLORIDE. [Suspect]
     Active Substance: PROPRANOLOL HYDROCHLORIDE
     Indication: MIGRAINE
     Route: 065
  4. MICROGYNON 30 [Suspect]
     Active Substance: ETHINYL ESTRADIOL\LEVONORGESTREL ACETATE
     Indication: MENOMETRORRHAGIA
     Route: 048
  5. SODIUM HYDROGEN CARBONATE 8.4% [Concomitant]
     Dosage: 10ML 8.4% SODIUM BICARBONATE
  6. LIDOCAINE 1 % [Concomitant]
     Active Substance: LIDOCAINE
     Dosage: 100ML 1% LIDOCAINE

REACTIONS (3)
  - Pulseless electrical activity [Fatal]
  - Pulmonary embolism [Fatal]
  - Cardiac arrest [Fatal]
